FAERS Safety Report 11403618 (Version 1)
Quarter: 2015Q3

REPORT INFORMATION
  Report Type: Spontaneous
  Country: US (occurrence: None)
  Receive Date: 20150820
  Receipt Date: 20150820
  Transmission Date: 20151125
  Serious: Yes (Hospitalization)
  Sender: FDA-Public Use
  Company Number: None

PATIENT
  Age: 37 Year
  Sex: Female
  Weight: 49.9 kg

DRUGS (3)
  1. HEADACHE MEDICINE [Concomitant]
  2. LYRICA [Suspect]
     Active Substance: PREGABALIN
     Indication: NEURALGIA
     Dosage: 2 PILLS TWICE
     Route: 048
     Dates: start: 20140801, end: 20150818
  3. HEARTBURN MEDICINE [Concomitant]

REACTIONS (3)
  - Loss of consciousness [None]
  - Seizure [None]
  - Dizziness [None]

NARRATIVE: CASE EVENT DATE: 20150816
